FAERS Safety Report 21270196 (Version 1)
Quarter: 2022Q3

REPORT INFORMATION
  Report Type: Spontaneous
  Country: NL (occurrence: NL)
  Receive Date: 20220830
  Receipt Date: 20220830
  Transmission Date: 20221026
  Serious: Yes (Other)
  Sender: FDA-Public Use
  Company Number: None

PATIENT
  Age: 33 Year
  Sex: Female
  Weight: 74 kg

DRUGS (3)
  1. TRAMADOL [Suspect]
     Active Substance: TRAMADOL
     Indication: Product used for unknown indication
     Dosage: MAXIMUM OF 3 PER 24 HOURS START WITH 1
     Route: 065
     Dates: start: 20220706, end: 20220707
  2. ALEVE [Concomitant]
     Active Substance: NAPROXEN SODIUM
     Dosage: COATED TABLET, 220 MG (MILLIGRAM)
     Route: 065
  3. PHENYLTOLOXAMINE [Concomitant]
     Active Substance: PHENYLTOLOXAMINE
     Dosage: 500 MILLIGRAM, CAPSULE,500 MG (MILLIGRAM)
     Route: 065

REACTIONS (12)
  - Hallucination [Unknown]
  - Muscle spasms [Unknown]
  - Speech disorder [Unknown]
  - Mydriasis [Unknown]
  - Agitation [Unknown]
  - Hypertension [Unknown]
  - Coordination abnormal [Unknown]
  - Muscular weakness [Unknown]
  - Dizziness [Unknown]
  - Hyperhidrosis [Unknown]
  - Tachycardia [Unknown]
  - Tremor [Unknown]

NARRATIVE: CASE EVENT DATE: 20220707
